FAERS Safety Report 7022660-1 (Version None)
Quarter: 2010Q3

REPORT INFORMATION
  Report Type: 
  Country: None (occurrence: None)
  Receive Date: 20100930
  Receipt Date: 20100908
  Transmission Date: 20110219
  Serious: No
  Sender: FDA-Public Use
  Company Number: US-BAYER-201033116NA

PATIENT
  Age: 57 Year
  Sex: Male

DRUGS (1)
  1. ULTRAVIST 300 [Suspect]
     Indication: COMPUTERISED TOMOGRAM ABDOMEN
     Dosage: VIA POWER INJECTOR
     Route: 042
     Dates: start: 20100908, end: 20100908

REACTIONS (3)
  - FLUSHING [None]
  - HYPERSENSITIVITY [None]
  - URTICARIA [None]
